FAERS Safety Report 8146290-3 (Version None)
Quarter: 2012Q1

REPORT INFORMATION
  Report Type: 
  Country: None (occurrence: None)
  Receive Date: 20120217
  Receipt Date: 20120216
  Transmission Date: 20120608
  Serious: Yes (Life-Threatening, Hospitalization)
  Sender: FDA-Public Use
  Company Number: PHBS2005CH16434

PATIENT
  Age: 92 Year
  Sex: Female

DRUGS (6)
  1. AMANTADINE HCL [Suspect]
     Indication: PARKINSON'S DISEASE
  2. CARBIDOPA + LEVODOPA [Suspect]
     Indication: PARKINSON'S DISEASE
  3. LEVODOPA W/BENSERAZIDE/ [Suspect]
     Indication: PARKINSON'S DISEASE
  4. HALOPERIDOL [Suspect]
     Indication: AGITATION
  5. HALOPERIDOL [Suspect]
     Indication: RESTLESSNESS
     Dosage: 0.2 MG, TID
  6. BISOPROLOL FUMARATE [Suspect]
     Indication: ANGINA PECTORIS
     Dosage: 2.5 MG/DAY

REACTIONS (13)
  - ATRIOVENTRICULAR BLOCK FIRST DEGREE [None]
  - ELECTROCARDIOGRAM QT PROLONGED [None]
  - INFECTION [None]
  - CHEST PAIN [None]
  - TORSADE DE POINTES [None]
  - AGITATION [None]
  - DYSPNOEA PAROXYSMAL NOCTURNAL [None]
  - ATRIOVENTRICULAR BLOCK COMPLETE [None]
  - PRESYNCOPE [None]
  - ANGINA PECTORIS [None]
  - BUNDLE BRANCH BLOCK LEFT [None]
  - FALL [None]
  - BRADYCARDIA [None]
